FAERS Safety Report 4881405-1 (Version None)
Quarter: 2005Q4

REPORT INFORMATION
  Report Type: 
  Country: None (occurrence: None)
  Receive Date: 20051201
  Receipt Date: 20050730
  Transmission Date: 20060501
  Serious: No
  Sender: FDA-Public Use
  Company Number: 2005PV000689

PATIENT
  Sex: Female

DRUGS (1)
  1. BYETTA [Suspect]
     Indication: DIABETES MELLITUS NON-INSULIN-DEPENDENT
     Dosage: 5 MCG; BID; SC
     Route: 058
     Dates: start: 20050601, end: 20050730

REACTIONS (8)
  - CONJUNCTIVITIS [None]
  - EYE INFLAMMATION [None]
  - EYE PAIN [None]
  - EYE SWELLING [None]
  - INTRAOCULAR PRESSURE TEST ABNORMAL [None]
  - IRITIS [None]
  - OCULAR HYPERAEMIA [None]
  - VISUAL ACUITY REDUCED [None]
